FAERS Safety Report 16189264 (Version 2)
Quarter: 2019Q2

REPORT INFORMATION
  Report Type: Spontaneous
  Country: US (occurrence: US)
  Receive Date: 20190412
  Receipt Date: 20190426
  Transmission Date: 20190711
  Serious: Yes (Other)
  Sender: FDA-Public Use
  Company Number: US-BAYER-2019-070648

PATIENT
  Age: 33 Year
  Sex: Female
  Weight: 60.32 kg

DRUGS (2)
  1. MIRENA [Suspect]
     Active Substance: LEVONORGESTREL
     Indication: CONTRACEPTION
     Dosage: 20 MCG/24HR, CONT
     Route: 015
     Dates: start: 20150903, end: 20190330
  2. MIRENA [Suspect]
     Active Substance: LEVONORGESTREL
     Indication: CONTRACEPTION

REACTIONS (4)
  - Pregnancy with contraceptive device [None]
  - Haemorrhage in pregnancy [None]
  - Drug ineffective [None]
  - Abortion spontaneous [None]

NARRATIVE: CASE EVENT DATE: 20190306
